FAERS Safety Report 21146650 (Version 2)
Quarter: 2022Q4

REPORT INFORMATION
  Report Type: Report from Study
  Country: US (occurrence: US)
  Receive Date: 20220729
  Receipt Date: 20221111
  Transmission Date: 20230113
  Serious: Yes (Other)
  Sender: FDA-Public Use
  Company Number: US-ABBVIE-22K-163-4486034-00

PATIENT
  Sex: Male

DRUGS (3)
  1. SKYRIZI [Suspect]
     Active Substance: RISANKIZUMAB-RZAA
     Indication: Psoriasis
     Dosage: WEEK ZERO?ONE IN ONCE FREQUENCY?FORM STRENGTH- 150 MILLIGRAM
     Route: 058
     Dates: start: 20220428, end: 20220428
  2. SKYRIZI [Suspect]
     Active Substance: RISANKIZUMAB-RZAA
     Dosage: FORM STRENGTH- 150 MILLIGRAM
     Route: 058
     Dates: start: 2022
  3. SKYRIZI [Suspect]
     Active Substance: RISANKIZUMAB-RZAA
     Dosage: WEEK FOUR ?ONE IN ONCE FREQUENCY?FORM STRENGTH- 150 MILLIGRAM
     Route: 058
     Dates: start: 20220525, end: 20220525

REACTIONS (5)
  - Brain neoplasm [Unknown]
  - Penile pain [Unknown]
  - Erythema [Unknown]
  - Burning sensation [Unknown]
  - Hyperhidrosis [Unknown]

NARRATIVE: CASE EVENT DATE: 20220101
